FAERS Safety Report 7075278-9 (Version None)
Quarter: 2010Q4

REPORT INFORMATION
  Report Type: 
  Country: None (occurrence: None)
  Receive Date: 20101030
  Receipt Date: 20100812
  Transmission Date: 20110411
  Serious: No
  Sender: FDA-Public Use
  Company Number: US-WYE-H16008010

PATIENT
  Age: 57 Year
  Sex: Female
  Weight: 81.72 kg

DRUGS (3)
  1. ADVIL PM [Suspect]
     Indication: INSOMNIA
     Dosage: 2 CAPLETS THREE TIMES
     Route: 048
     Dates: start: 20100101, end: 20100101
  2. ACTIVELLA [Concomitant]
  3. BUPROPION [Concomitant]

REACTIONS (2)
  - ABNORMAL DREAMS [None]
  - DRUG INEFFECTIVE [None]
